FAERS Safety Report 8984904 (Version 1)
Quarter: 2012Q4

REPORT INFORMATION
  Report Type: 
  Country: US (occurrence: US)
  Receive Date: 20121226
  Receipt Date: 20121226
  Transmission Date: 20130627
  Serious: No
  Sender: FDA-Public Use
  Company Number: US-PFIZER INC-2012325918

PATIENT
  Age: 69 Year
  Sex: Male

DRUGS (1)
  1. SUTENT [Suspect]
     Indication: RENAL CELL CANCER
     Dosage: 12.5 mg, 3x/day
     Dates: start: 20090305

REACTIONS (2)
  - Disease progression [Unknown]
  - Renal cell carcinoma [Unknown]
